FAERS Safety Report 7737856-0 (Version None)
Quarter: 2011Q3

REPORT INFORMATION
  Report Type: 
  Country: None (occurrence: None)
  Receive Date: 20110908
  Receipt Date: 20110830
  Transmission Date: 20111222
  Serious: No
  Sender: FDA-Public Use
  Company Number: PHHY2011US68950

PATIENT
  Sex: Male

DRUGS (1)
  1. TASIGNA [Suspect]
     Indication: CHRONIC MYELOID LEUKAEMIA
     Dosage: 300 MG, BID
     Route: 048
     Dates: start: 20110718

REACTIONS (6)
  - MALAISE [None]
  - HEADACHE [None]
  - FLUSHING [None]
  - SENSATION OF BLOOD FLOW [None]
  - DRY SKIN [None]
  - PRURITUS [None]
